FAERS Safety Report 10034286 (Version 2)
Quarter: 2014Q2

REPORT INFORMATION
  Report Type: Spontaneous
  Country: IT (occurrence: IT)
  Receive Date: 20140325
  Receipt Date: 20140506
  Transmission Date: 20141212
  Serious: Yes (Hospitalization)
  Sender: FDA-Public Use
  Company Number: IT-ACCORD-022672

PATIENT
  Age: 52 Year
  Sex: Male
  Weight: 64 kg

DRUGS (2)
  1. CARDIOASPIRIN [Concomitant]
     Indication: PROPHYLAXIS
     Dosage: 100 MG, 30 TABLETS
     Route: 048
     Dates: start: 2009
  2. ACCORD LEVETIRACETAM [Suspect]
     Indication: GENERALISED TONIC-CLONIC SEIZURE
     Dosage: BLISTER (PVC/ALU)^ 10 TABLETS OF 500 MG
     Route: 048
     Dates: start: 20140109, end: 20140113

REACTIONS (1)
  - Hepatitis acute [Recovering/Resolving]
